FAERS Safety Report 6186709-0 (Version None)
Quarter: 2009Q3

REPORT INFORMATION
  Report Type: 
  Country: None (occurrence: None)
  Receive Date: 20090508
  Receipt Date: 20090508
  Transmission Date: 20100115
  Serious: Yes (Death)
  Sender: FDA-Public Use
  Company Number: None

PATIENT

DRUGS (1)
  1. MORPHINE SULFATE [Suspect]

REACTIONS (3)
  - ACCIDENTAL OVERDOSE [None]
  - PRODUCT QUALITY ISSUE [None]
  - SWELLING FACE [None]
